FAERS Safety Report 21285742 (Version 3)
Quarter: 2022Q4

REPORT INFORMATION
  Report Type: Report from Study
  Country: JP (occurrence: JP)
  Receive Date: 20220902
  Receipt Date: 20221110
  Transmission Date: 20230113
  Serious: Yes (Hospitalization)
  Sender: FDA-Public Use
  Company Number: JP-JNJFOC-20220900012

PATIENT
  Age: 73 Year
  Sex: Female
  Weight: 43.4 kg

DRUGS (17)
  1. DARATUMUMAB [Suspect]
     Active Substance: DARATUMUMAB
     Indication: Plasma cell myeloma
     Route: 058
     Dates: start: 20220517, end: 20220517
  2. DARATUMUMAB [Suspect]
     Active Substance: DARATUMUMAB
     Indication: Plasma cell myeloma
     Route: 058
     Dates: start: 20220524, end: 20220524
  3. DARATUMUMAB [Suspect]
     Active Substance: DARATUMUMAB
     Route: 058
     Dates: start: 20220608, end: 20220608
  4. DARATUMUMAB [Suspect]
     Active Substance: DARATUMUMAB
     Route: 058
     Dates: start: 20220615, end: 20220615
  5. DARATUMUMAB [Suspect]
     Active Substance: DARATUMUMAB
     Route: 058
     Dates: start: 20220622, end: 20220622
  6. DARATUMUMAB [Suspect]
     Active Substance: DARATUMUMAB
     Route: 058
     Dates: start: 20220629, end: 20220629
  7. DARATUMUMAB [Suspect]
     Active Substance: DARATUMUMAB
     Route: 058
     Dates: start: 20220707, end: 20220707
  8. DARATUMUMAB [Suspect]
     Active Substance: DARATUMUMAB
     Route: 058
     Dates: start: 20220714, end: 20220714
  9. DARATUMUMAB [Suspect]
     Active Substance: DARATUMUMAB
     Route: 058
     Dates: start: 20220721, end: 20220721
  10. DARATUMUMAB [Suspect]
     Active Substance: DARATUMUMAB
     Route: 058
     Dates: start: 20220804, end: 20220804
  11. DARATUMUMAB [Suspect]
     Active Substance: DARATUMUMAB
     Route: 058
     Dates: start: 20220818, end: 20220818
  12. DARATUMUMAB [Suspect]
     Active Substance: DARATUMUMAB
     Route: 058
     Dates: start: 20220915, end: 20220915
  13. DARATUMUMAB [Suspect]
     Active Substance: DARATUMUMAB
     Route: 058
     Dates: start: 20220929, end: 20220929
  14. DARATUMUMAB [Suspect]
     Active Substance: DARATUMUMAB
     Route: 058
     Dates: start: 20221013, end: 20221013
  15. DARATUMUMAB [Suspect]
     Active Substance: DARATUMUMAB
     Route: 058
     Dates: start: 20221027, end: 20221027
  16. POMALIDOMIDE [Concomitant]
     Active Substance: POMALIDOMIDE
     Indication: Plasma cell myeloma
     Dosage: DOSE UNKNOWN
     Route: 065
  17. DEXAMETHASONE [Concomitant]
     Active Substance: DEXAMETHASONE
     Indication: Plasma cell myeloma
     Dosage: DOSE UNKNOWN
     Route: 065

REACTIONS (1)
  - COVID-19 [Recovered/Resolved]

NARRATIVE: CASE EVENT DATE: 20220824
